FAERS Safety Report 13041661 (Version 1)
Quarter: 2016Q4

REPORT INFORMATION
  Report Type: Spontaneous
  Country: US (occurrence: US)
  Receive Date: 20161219
  Receipt Date: 20161219
  Transmission Date: 20170207
  Serious: No
  Sender: FDA-Public Use
  Company Number: US-ROCHE-1356903

PATIENT
  Age: 37 Year
  Sex: Male

DRUGS (1)
  1. VEMURAFENIB [Suspect]
     Active Substance: VEMURAFENIB
     Indication: MALIGNANT MELANOMA
     Route: 065

REACTIONS (4)
  - Keratosis pilaris [Unknown]
  - Recall phenomenon [Unknown]
  - Dermatitis [Unknown]
  - Wound dehiscence [Recovering/Resolving]
